FAERS Safety Report 6572719-8 (Version None)
Quarter: 2010Q1

REPORT INFORMATION
  Report Type: 
  Country: None (occurrence: None)
  Receive Date: 20100205
  Receipt Date: 20100125
  Transmission Date: 20100710
  Serious: Yes (Hospitalization, Other)
  Sender: FDA-Public Use
  Company Number: AT-ELI_LILLY_AND_COMPANY-AT201001005441

PATIENT
  Sex: Female
  Weight: 69 kg

DRUGS (16)
  1. CYMBALTA [Suspect]
     Dosage: 90 MG, DAILY (1/D)
     Route: 065
     Dates: start: 20080101
  2. TRILEPTAL [Concomitant]
     Dosage: 600 MG, UNK
     Dates: start: 20091203, end: 20091203
  3. TRILEPTAL [Concomitant]
     Dosage: 900 MG, UNK
     Dates: end: 20091206
  4. TRAZODONE HCL [Concomitant]
     Dosage: 150 MG, UNK
     Dates: start: 20080101
  5. TRAZODONE HCL [Concomitant]
     Dosage: 100 MG, UNK
  6. TRAZODONE HCL [Concomitant]
     Dosage: 200 MG, UNK
  7. TRAZODONE HCL [Concomitant]
     Dosage: 50 MG, UNK
  8. NEURONTIN [Concomitant]
     Dosage: 300 MG, UNK
     Dates: start: 20080101
  9. PRAXITEN [Concomitant]
     Dosage: 15 - 30 MG
     Dates: start: 20091104
  10. CONVULEX [Concomitant]
     Dosage: 300 MG, UNK
  11. AMITRIPTYLINE HYDROCHLORIDE [Concomitant]
  12. PANTOLOC                           /01263201/ [Concomitant]
     Dosage: 40 MG, UNK
     Dates: start: 20080101
  13. TRIAMTERENE AND HYDROCHLOROTHIAZIDE [Concomitant]
     Dosage: 2 MG, UNK
     Dates: start: 20090101
  14. METHOTREXATE [Concomitant]
     Dosage: 10 MG, UNK
     Dates: start: 20070101
  15. FOLSAN [Concomitant]
     Dosage: 5 MG, WEEKLY (1/W)
     Dates: start: 20070101
  16. DURAGESIC-100 [Concomitant]
     Dosage: 25 UG EVER 3 DAYS.
     Dates: start: 20080101

REACTIONS (2)
  - HOSPITALISATION [None]
  - HYPONATRAEMIA [None]
